FAERS Safety Report 17377107 (Version 8)
Quarter: 2020Q4

REPORT INFORMATION
  Report Type: Spontaneous
  Country: JP (occurrence: JP)
  Receive Date: 20200206
  Receipt Date: 20201006
  Transmission Date: 20210113
  Serious: Yes (Other)
  Sender: FDA-Public Use
  Company Number: JP-KYOWAKIRIN-2020AKK001583

PATIENT

DRUGS (15)
  1. LANSOPRAZOLE. [Concomitant]
     Active Substance: LANSOPRAZOLE
     Indication: PROPHYLAXIS AGAINST GASTROINTESTINAL ULCER
     Dosage: 30 MG, QD
     Route: 048
     Dates: start: 20200109
  2. LEVOFLOXACIN HEMIHYDRATE [Concomitant]
     Active Substance: LEVOFLOXACIN
     Indication: INFECTION PROPHYLAXIS
     Dosage: 500 MG, QD
     Route: 048
     Dates: start: 20200108
  3. LYRICA [Concomitant]
     Active Substance: PREGABALIN
     Indication: NEURALGIA
     Dosage: 300 MG
     Route: 048
     Dates: start: 20200109
  4. METHOTREXATE. [Suspect]
     Active Substance: METHOTREXATE
     Indication: METASTASES TO NERVOUS SYSTEM
     Dosage: 15 MG, SINGLE
     Dates: start: 20200110, end: 20200110
  5. PROCARBAZINE HYDROCHLORIDE [Concomitant]
     Active Substance: PROCARBAZINE HYDROCHLORIDE
     Indication: ADULT T-CELL LYMPHOMA/LEUKAEMIA
     Dosage: 150 MG
     Route: 048
     Dates: start: 20200131
  6. URSO [Concomitant]
     Active Substance: URSODIOL
     Dosage: 900 MG
     Route: 048
     Dates: start: 20200108
  7. CYLOCIDE [Suspect]
     Active Substance: CYTARABINE
     Indication: ADULT T-CELL LYMPHOMA/LEUKAEMIA
     Dosage: 40 MG, SINGLE
     Dates: start: 20200110, end: 20200110
  8. FLUCONAZOLE. [Concomitant]
     Active Substance: FLUCONAZOLE
     Indication: INFECTION PROPHYLAXIS
     Dosage: 100 MG, QD
     Route: 048
     Dates: start: 20200109
  9. POTELIGEO [Suspect]
     Active Substance: MOGAMULIZUMAB-KPKC
     Indication: ADULT T-CELL LYMPHOMA/LEUKAEMIA
     Dosage: 64 MG, 1X/WEEK
     Route: 041
     Dates: start: 20200110, end: 20200117
  10. METHOTREXATE. [Suspect]
     Active Substance: METHOTREXATE
     Indication: ADULT T-CELL LYMPHOMA/LEUKAEMIA
     Dosage: 810 MG
     Route: 041
     Dates: start: 20200131
  11. ACICLOVIR [Concomitant]
     Active Substance: ACYCLOVIR
     Indication: INFECTION PROPHYLAXIS
     Dosage: 200 MG, QD
     Route: 048
     Dates: start: 20200109
  12. FEBURIC [Concomitant]
     Active Substance: FEBUXOSTAT
     Indication: INFECTION PROPHYLAXIS
     Dosage: 10 MG, QD
     Route: 048
     Dates: start: 20200109
  13. MECOBALAMIN [Concomitant]
     Active Substance: METHYLCOBALAMIN
     Indication: NEURALGIA
     Dosage: 1500 UG
     Route: 048
     Dates: start: 20200112
  14. ASPARA POTASSIUM [Concomitant]
     Active Substance: POTASSIUM ASPARTATE
     Indication: HYPOKALAEMIA
     Dosage: 2700 MG
     Route: 048
     Dates: start: 20200109
  15. REBAMIPIDE [Concomitant]
     Active Substance: REBAMIPIDE
     Indication: PROPHYLAXIS AGAINST GASTROINTESTINAL ULCER
     Dosage: 300 MG
     Route: 048
     Dates: start: 20200109

REACTIONS (3)
  - Pancytopenia [Recovering/Resolving]
  - Rash [Recovering/Resolving]
  - Cytomegalovirus infection [Not Recovered/Not Resolved]

NARRATIVE: CASE EVENT DATE: 20200127
